FAERS Safety Report 18396101 (Version 1)
Quarter: 2020Q4

REPORT INFORMATION
  Report Type: Report from Study
  Country: None (occurrence: US)
  Receive Date: 20201019
  Receipt Date: 20201019
  Transmission Date: 20210114
  Serious: Yes (Other)
  Sender: FDA-Public Use
  Company Number: US-ABBVIE-20K-163-3601371-00

PATIENT
  Sex: Female

DRUGS (1)
  1. VENCLEXTA [Suspect]
     Active Substance: VENETOCLAX
     Indication: ACUTE MYELOID LEUKAEMIA
     Dosage: 1 TABLET ON DAY 1, 2 TABLETS ON DAY 2, THEN 4 TABLETS THEREAFTER BY MOUTH DAILY .
     Route: 048

REACTIONS (2)
  - Deafness [Unknown]
  - Off label use [Unknown]
